FAERS Safety Report 21744842 (Version 1)
Quarter: 2022Q4

REPORT INFORMATION
  Report Type: Other
  Country: DE (occurrence: None)
  Receive Date: 20221219
  Receipt Date: 20221219
  Transmission Date: 20230112
  Serious: No
  Sender: FDA-Public Use
  Company Number: DE-ROCHE-3243845

PATIENT
  Age: 34 Year
  Sex: Male

DRUGS (7)
  1. OCRELIZUMAB [Suspect]
     Active Substance: OCRELIZUMAB
     Indication: Relapsing multiple sclerosis
     Route: 042
     Dates: start: 20220613
  2. PREDNISOLONE [Concomitant]
     Active Substance: PREDNISOLONE
     Indication: Premedication
     Dosage: ONCE
     Route: 048
     Dates: start: 20220613, end: 20220613
  3. PREDNISOLONE [Concomitant]
     Active Substance: PREDNISOLONE
     Dosage: ONCE
     Route: 048
     Dates: start: 20220802, end: 20220802
  4. DIMETHINDENE [Concomitant]
     Active Substance: DIMETHINDENE
     Indication: Premedication
     Dosage: ONCE
     Route: 048
     Dates: start: 20220613, end: 20220613
  5. DIMETHINDENE [Concomitant]
     Active Substance: DIMETHINDENE
     Dosage: ONCE
     Route: 048
     Dates: start: 20220802, end: 20220802
  6. CHOLECALCIFEROL [Concomitant]
     Active Substance: CHOLECALCIFEROL
     Indication: Prophylaxis
     Dosage: ONGOING
     Route: 048
     Dates: start: 20170209
  7. PAXLOVID [Concomitant]
     Active Substance: NIRMATRELVIR\RITONAVIR
     Indication: COVID-19
     Route: 048
     Dates: start: 20220322, end: 20220326

REACTIONS (1)
  - COVID-19 [Recovered/Resolved]

NARRATIVE: CASE EVENT DATE: 20221017
